FAERS Safety Report 7537279-3 (Version None)
Quarter: 2011Q2

REPORT INFORMATION
  Report Type: 
  Country: None (occurrence: None)
  Receive Date: 20110609
  Receipt Date: 20110606
  Transmission Date: 20111010
  Serious: Yes (Other)
  Sender: FDA-Public Use
  Company Number: US-PFIZER INC-2011122371

PATIENT
  Sex: Male
  Weight: 142 kg

DRUGS (2)
  1. ADVIL LIQUI-GELS [Suspect]
     Indication: BACK PAIN
     Dosage: 2 DF, 1X/DAY
     Route: 048
     Dates: start: 20060101, end: 20110606
  2. ADVIL LIQUI-GELS [Suspect]
     Indication: HEADACHE

REACTIONS (2)
  - HYPOAESTHESIA [None]
  - HYPOAESTHESIA FACIAL [None]
